FAERS Safety Report 23804576 (Version 1)
Quarter: 2024Q2

REPORT INFORMATION
  Report Type: Spontaneous
  Country: US (occurrence: None)
  Receive Date: 20240501
  Receipt Date: 20240501
  Transmission Date: 20240715
  Serious: Yes (Hospitalization)
  Sender: FDA-Public Use
  Company Number: None

PATIENT
  Age: 77 Year
  Sex: Male

DRUGS (1)
  1. HEPARIN CALCIUM [Suspect]
     Active Substance: HEPARIN CALCIUM
     Indication: Jugular vein thrombosis
     Route: 042
     Dates: start: 20230213, end: 20230214

REACTIONS (2)
  - Heparin-induced thrombocytopenia [None]
  - Delirium [None]

NARRATIVE: CASE EVENT DATE: 20230217
